FAERS Safety Report 7448217-6 (Version None)
Quarter: 2011Q2

REPORT INFORMATION
  Report Type: 
  Country: None (occurrence: None)
  Receive Date: 20110429
  Receipt Date: 20100414
  Transmission Date: 20111010
  Serious: No
  Sender: FDA-Public Use
  Company Number: US-ASTRAZENECA-2010SE16492

PATIENT
  Age: 72 Year
  Sex: Female
  Weight: 67.1 kg

DRUGS (4)
  1. NEXIUM [Suspect]
     Route: 048
     Dates: start: 20050101, end: 20100101
  2. ERYTHROMYCIN [Concomitant]
  3. PREDNISONE [Concomitant]
  4. NEXIUM [Suspect]
     Indication: GASTROOESOPHAGEAL REFLUX DISEASE
     Route: 048
     Dates: start: 20050101, end: 20050101

REACTIONS (10)
  - ABDOMINAL DISTENSION [None]
  - CHEST DISCOMFORT [None]
  - PHARYNGEAL OEDEMA [None]
  - APHAGIA [None]
  - WEIGHT INCREASED [None]
  - DYSPHAGIA [None]
  - HYPOAESTHESIA [None]
  - WEIGHT DECREASED [None]
  - HEADACHE [None]
  - ARTHRALGIA [None]
